FAERS Safety Report 8424333-7 (Version None)
Quarter: 2012Q2

REPORT INFORMATION
  Report Type: 
  Country: None (occurrence: None)
  Receive Date: 20120608
  Receipt Date: 20110906
  Transmission Date: 20120825
  Serious: No
  Sender: FDA-Public Use
  Company Number: US-ASTRAZENECA-2011SE53651

PATIENT
  Age: 58 Year
  Sex: Male
  Weight: 81.6 kg

DRUGS (4)
  1. TRIAMTRORIN [Concomitant]
     Indication: HYPERTENSION
  2. KEPPRA [Concomitant]
     Indication: CONVULSION
  3. ANALOPRIL [Concomitant]
     Indication: HYPERTENSION
  4. PULMICORT FLEXHALER [Suspect]
     Indication: ASTHMA
     Route: 055
     Dates: start: 20110301

REACTIONS (2)
  - DYSPNOEA [None]
  - CIRCUMSTANCE OR INFORMATION CAPABLE OF LEADING TO MEDICATION ERROR [None]
